FAERS Safety Report 5002682-2 (Version None)
Quarter: 2006Q2

REPORT INFORMATION
  Report Type: 
  Country: None (occurrence: None)
  Receive Date: 20060510
  Receipt Date: 20060428
  Transmission Date: 20061013
  Serious: Yes (Other)
  Sender: FDA-Public Use
  Company Number: 2006043403

PATIENT
  Age: 52 Year
  Sex: Female

DRUGS (4)
  1. FELDENE [Suspect]
     Indication: PAIN
     Dosage: (DAILY INTERVAL:  EVERYDAY), TOPICAL
     Route: 061
     Dates: start: 20060310, end: 20060310
  2. DICLOFENAC (DICLONFENAC SODIUM) [Concomitant]
  3. ALL OTHER THERAPEUTIC PRODUCTS (ALL OTHER THERAPEUTIC PRODUCTS) [Concomitant]
  4. MIO-CITALGAN (CAFFEINE, CARISOPRODOL, PARACETAMOL, VITAMIN B NOS) [Concomitant]

REACTIONS (3)
  - DRY SKIN [None]
  - HYPERSENSITIVITY [None]
  - SKIN DISCOLOURATION [None]
